FAERS Safety Report 25842852 (Version 1)
Quarter: 2025Q3

REPORT INFORMATION
  Report Type: Spontaneous
  Country: US (occurrence: US)
  Receive Date: 20250924
  Receipt Date: 20250924
  Transmission Date: 20251020
  Serious: Yes (Hospitalization)
  Sender: ELI LILLY AND COMPANY
  Company Number: US-ELI_LILLY_AND_COMPANY-US202509018394

PATIENT
  Age: 73 Year
  Sex: Female

DRUGS (1)
  1. HUMALOG [Suspect]
     Active Substance: INSULIN LISPRO
     Indication: Product used for unknown indication
     Route: 065

REACTIONS (6)
  - Blood glucose increased [Recovered/Resolved]
  - Vomiting [Unknown]
  - Dizziness [Unknown]
  - Anaemia [Unknown]
  - Heart rate increased [Unknown]
  - Asthenia [Unknown]

NARRATIVE: CASE EVENT DATE: 20250910
